FAERS Safety Report 9002858 (Version 1)
Quarter: 2013Q1

REPORT INFORMATION
  Report Type: Spontaneous
  Country: CN (occurrence: CN)
  Receive Date: 20130108
  Receipt Date: 20130108
  Transmission Date: 20140127
  Serious: Yes (Other)
  Sender: FDA-Public Use
  Company Number: CN-PFIZER INC-2013004247

PATIENT
  Age: 71 Year
  Sex: Male
  Weight: 60 kg

DRUGS (1)
  1. MS CONTIN [Suspect]
     Indication: CANCER PAIN
     Dosage: 30 MG, 2X/DAY
     Route: 048
     Dates: start: 20090721, end: 20090726

REACTIONS (2)
  - Nausea [Recovering/Resolving]
  - Dizziness [Recovered/Resolved]
